FAERS Safety Report 7564550-1 (Version None)
Quarter: 2011Q2

REPORT INFORMATION
  Report Type: 
  Country: None (occurrence: None)
  Receive Date: 20110622
  Receipt Date: 20100604
  Transmission Date: 20111010
  Serious: Yes (Death)
  Sender: FDA-Public Use
  Company Number: US-MYLANLABS-2010S1009161

PATIENT
  Age: 45 Year
  Sex: Male
  Weight: 93.26 kg

DRUGS (3)
  1. CLOZAPINE [Suspect]
     Route: 048
     Dates: start: 20090101
  2. TRILEPTAL [Concomitant]
     Route: 048
     Dates: start: 20071001
  3. CLOZAPINE [Suspect]
     Indication: SCHIZOPHRENIA
     Route: 048
     Dates: start: 20090101

REACTIONS (1)
  - CARDIAC DISORDER [None]
